FAERS Safety Report 14115388 (Version 4)
Quarter: 2018Q1

REPORT INFORMATION
  Report Type: Spontaneous
  Country: IN (occurrence: IN)
  Receive Date: 20171023
  Receipt Date: 20180123
  Transmission Date: 20180508
  Serious: Yes (Death, Hospitalization, Other)
  Sender: FDA-Public Use
  Company Number: IN-PFIZER INC-2017453496

PATIENT
  Age: 63 Year
  Sex: Female

DRUGS (1)
  1. PALBACE [Suspect]
     Active Substance: PALBOCICLIB
     Indication: BREAST CANCER METASTATIC
     Dosage: 125 MG, 1X/DAY
     Route: 048
     Dates: start: 20170911

REACTIONS (10)
  - Fluid retention [Fatal]
  - Liver function test increased [Unknown]
  - Dehydration [Unknown]
  - Abdominal pain upper [Unknown]
  - Neoplasm progression [Unknown]
  - Feeling abnormal [Unknown]
  - Hepatic pain [Unknown]
  - Cardiac arrest [Fatal]
  - White blood cell count decreased [Not Recovered/Not Resolved]
  - Vomiting [Unknown]

NARRATIVE: CASE EVENT DATE: 2017
